FAERS Safety Report 10176868 (Version 1)
Quarter: 2014Q2

REPORT INFORMATION
  Report Type: Other
  Country: US (occurrence: US)
  Receive Date: 20140516
  Receipt Date: 20140516
  Transmission Date: 20141212
  Serious: Yes (Hospitalization, Other)
  Sender: FDA-Public Use
  Company Number: US-SHIRE-US201402068

PATIENT
  Age: 57 Year
  Sex: Male
  Weight: 77.98 kg

DRUGS (11)
  1. FOSRENOL [Suspect]
     Indication: RENAL FAILURE
     Dosage: 1000 MG, 2 TABLETS, OTHER (WITH MEALS + BIG SNACKS AT LEAST 6 TABLETS DAILY)
     Route: 048
     Dates: end: 2014
  2. PHOSLO [Concomitant]
     Indication: RENAL DISORDER
     Dosage: 2668 MG (FOUR 667MG CAPSULES), OTHER (WITH MEALS)
     Route: 065
     Dates: start: 2000
  3. SIMVASTATIN [Concomitant]
     Indication: BLOOD CHOLESTEROL INCREASED
     Dosage: 20 MG, 1X/DAY:QD
     Route: 065
     Dates: start: 2008
  4. GABAPENTIN [Concomitant]
     Indication: RESTLESS LEGS SYNDROME
     Dosage: 300 MG, 1X/DAY:QD
     Route: 065
     Dates: start: 2000
  5. GABAPENTIN [Concomitant]
     Indication: DIALYSIS
  6. METOPROLOL [Concomitant]
     Indication: HEART RATE ABNORMAL
     Dosage: 25 MG, 2X/DAY:BID (M-W-F)
     Route: 065
     Dates: start: 2000
  7. METOPROLOL [Concomitant]
     Dosage: 50 MG, 2X/DAY:BID (T-TH-SAT-SUN)
     Route: 065
     Dates: start: 2000
  8. RENA-VITE [Concomitant]
     Indication: HYPOVITAMINOSIS
     Dosage: 1 DF, 1X/DAY:QD
     Route: 065
     Dates: start: 2000
  9. PRILOSEC                           /00661201/ [Concomitant]
     Indication: ANTACID THERAPY
     Dosage: 20 MG, 2X/DAY:BID (1 IN AM + 1 IN PM)
     Route: 065
     Dates: start: 2000
  10. BABY ASPIRIN [Concomitant]
     Indication: PRODUCT USED FOR UNKNOWN INDICATION
     Dosage: 81 MG, 1X/DAY:QD
     Route: 065
  11. PROBIOTIC                          /06395501/ [Concomitant]
     Indication: SUPPLEMENTATION THERAPY
     Dosage: 393 MG, 1X/DAY:QD
     Route: 065

REACTIONS (6)
  - Myocardial infarction [Unknown]
  - Renal failure [Unknown]
  - Depression [Unknown]
  - Decreased appetite [Unknown]
  - Prescribed overdose [Recovered/Resolved]
  - Product quality issue [Recovered/Resolved]
